FAERS Safety Report 14934294 (Version 3)
Quarter: 2018Q2

REPORT INFORMATION
  Report Type: Report from Study
  Country: BR (occurrence: BR)
  Receive Date: 20180524
  Receipt Date: 20180606
  Transmission Date: 20180711
  Serious: Yes (Other)
  Sender: FDA-Public Use
  Company Number: PHHY2018BR005455

PATIENT
  Sex: Female
  Weight: 93 kg

DRUGS (5)
  1. SELOZOK [Concomitant]
     Active Substance: METOPROLOL SUCCINATE
     Indication: HYPERTENSION
     Dosage: 25 MG, UNK (APPROXIMATELY 20 YEARS AGO)
     Route: 065
  2. BENICAR [Concomitant]
     Active Substance: OLMESARTAN MEDOXOMIL
     Indication: HYPERTENSION
     Dosage: 40 MG, UNK (APPROXIMATELY 20 YEARS AGO)
     Route: 065
  3. PAXIL [Concomitant]
     Active Substance: PAROXETINE HYDROCHLORIDE
     Indication: ANTIDEPRESSANT THERAPY
     Dosage: UNK (APPROXIMATELY 20 YEARS AGO)
     Route: 065
  4. ACLASTA [Suspect]
     Active Substance: ZOLEDRONIC ACID
     Dosage: 5 MG, UNK
     Route: 042
     Dates: start: 20180523
  5. ACLASTA [Suspect]
     Active Substance: ZOLEDRONIC ACID
     Indication: OSTEOPOROSIS
     Dosage: 1 DF, UNK
     Route: 042
     Dates: start: 20150515, end: 20150515

REACTIONS (8)
  - Malaise [Recovered/Resolved]
  - Feeling abnormal [Unknown]
  - Pain [Recovered/Resolved]
  - Vomiting [Recovered/Resolved]
  - Pyrexia [Recovered/Resolved]
  - Blindness [Unknown]
  - Hyperactive pharyngeal reflex [Unknown]
  - Influenza [Unknown]

NARRATIVE: CASE EVENT DATE: 2015
